FAERS Safety Report 8355469-7 (Version None)
Quarter: 2012Q2

REPORT INFORMATION
  Report Type: 
  Country: None (occurrence: None)
  Receive Date: 20120512
  Receipt Date: 20120501
  Transmission Date: 20120825
  Serious: Yes (Hospitalization, Other)
  Sender: FDA-Public Use
  Company Number: US-ELI_LILLY_AND_COMPANY-US201112002123

PATIENT
  Sex: Female

DRUGS (17)
  1. FORTEO [Suspect]
     Dosage: 20 UG, QD
  2. NOVOLOG [Concomitant]
  3. FORTEO [Suspect]
     Indication: OSTEOPOROSIS
     Dosage: 20 UG, QD
  4. GLIPIZIDE [Concomitant]
     Indication: PROPHYLAXIS AGAINST TRANSPLANT REJECTION
  5. PAXIL [Concomitant]
  6. FORTEO [Suspect]
     Dosage: 20 UG, QD
  7. ZETIA [Concomitant]
  8. CADUET [Concomitant]
  9. ASPIRIN [Concomitant]
     Dosage: UNK, QD
  10. PROGRAF [Concomitant]
     Indication: PROPHYLAXIS AGAINST TRANSPLANT REJECTION
  11. SEPTRA [Concomitant]
     Indication: PROPHYLAXIS AGAINST TRANSPLANT REJECTION
  12. OMEPRAZOLE [Concomitant]
  13. TRAMADOL HCL [Concomitant]
  14. VITAMINS NOS [Concomitant]
  15. PREDNISONE TAB [Concomitant]
  16. COREG [Concomitant]
     Indication: PROPHYLAXIS AGAINST TRANSPLANT REJECTION
  17. CELLCEPT [Concomitant]
     Indication: TRANSPLANT

REACTIONS (7)
  - CREPITATIONS [None]
  - PAIN IN EXTREMITY [None]
  - LABORATORY TEST ABNORMAL [None]
  - INJECTION SITE PAIN [None]
  - SKIN CANCER [None]
  - ARTHRALGIA [None]
  - INCORRECT ROUTE OF DRUG ADMINISTRATION [None]
